FAERS Safety Report 5860766-0 (Version None)
Quarter: 2008Q3

REPORT INFORMATION
  Report Type: 
  Country: None (occurrence: None)
  Receive Date: 20080827
  Receipt Date: 20071115
  Transmission Date: 20090109
  Serious: No
  Sender: FDA-Public Use
  Company Number: US-ABBOTT-07P-163-0425296-00

PATIENT
  Sex: Male
  Weight: 72.64 kg

DRUGS (6)
  1. NIASPAN [Suspect]
     Indication: BLOOD CHOLESTEROL INCREASED
     Route: 048
     Dates: start: 20050101
  2. NIASPAN [Suspect]
     Route: 048
     Dates: end: 20070101
  3. NIASPAN [Suspect]
     Route: 048
  4. LYSINE [Concomitant]
     Indication: STOMATITIS
  5. FENOFIBRATE [Concomitant]
     Indication: BLOOD CHOLESTEROL INCREASED
  6. VALACYCLOVIR [Concomitant]
     Indication: STOMATITIS

REACTIONS (3)
  - FEELING HOT [None]
  - FLUSHING [None]
  - WEIGHT INCREASED [None]
